FAERS Safety Report 6544547-0 (Version None)
Quarter: 2010Q1

REPORT INFORMATION
  Report Type: 
  Country: None (occurrence: None)
  Receive Date: 20100120
  Receipt Date: 20100120
  Transmission Date: 20100710
  Serious: No
  Sender: FDA-Public Use
  Company Number: None

PATIENT
  Sex: Male
  Weight: 78.2 kg

DRUGS (1)
  1. CISPLATIN [Suspect]
     Dosage: 196 MG
     Dates: end: 20090224

REACTIONS (2)
  - BLOOD SODIUM DECREASED [None]
  - INFUSION RELATED REACTION [None]
